FAERS Safety Report 9742744 (Version 1)
Quarter: 2013Q4

REPORT INFORMATION
  Report Type: Spontaneous
  Country: US (occurrence: US)
  Receive Date: 20131210
  Receipt Date: 20131210
  Transmission Date: 20140711
  Serious: No
  Sender: FDA-Public Use
  Company Number: US-GILEAD-2009-0025957

PATIENT
  Age: 65 Year
  Sex: Female

DRUGS (6)
  1. LETAIRIS [Suspect]
     Indication: PULMONARY ARTERIAL HYPERTENSION
     Route: 048
     Dates: start: 20090711, end: 20091112
  2. LEVOTHYROXINE [Concomitant]
  3. POTASSIUM [Concomitant]
  4. DILTIAZEM CD [Concomitant]
  5. TRIAMTERENE [Concomitant]
  6. ACTOS [Concomitant]

REACTIONS (2)
  - Malaise [Recovered/Resolved]
  - Nausea [Recovered/Resolved]
